FAERS Safety Report 7221810-1 (Version None)
Quarter: 2011Q1

REPORT INFORMATION
  Report Type: 
  Country: None (occurrence: None)
  Receive Date: 20110112
  Receipt Date: 20110106
  Transmission Date: 20110831
  Serious: Yes (Hospitalization)
  Sender: FDA-Public Use
  Company Number: JP-ABBOTT-10P-087-0665359-00

PATIENT
  Age: 70 Year
  Sex: Female
  Weight: 46.9 kg

DRUGS (17)
  1. CLARITHROMYCIN [Suspect]
     Indication: ATYPICAL MYCOBACTERIAL INFECTION
     Dates: start: 20090121, end: 20090204
  2. EBUTOL [Concomitant]
     Indication: ATYPICAL MYCOBACTERIAL INFECTION
     Dates: start: 20090121, end: 20090204
  3. GLAKAY [Concomitant]
     Indication: PROPHYLAXIS
     Route: 048
     Dates: end: 20090202
  4. PONCYL FP [Concomitant]
     Indication: PROPHYLAXIS
     Route: 048
     Dates: end: 20090202
  5. CLARITHROMYCIN [Suspect]
     Dates: start: 20090324, end: 20091201
  6. TALION [Concomitant]
     Indication: PROPHYLAXIS
     Route: 048
  7. CLARITHROMYCIN [Suspect]
     Dates: start: 20090307, end: 20090309
  8. MUCOSOLVAN [Concomitant]
     Indication: PROPHYLAXIS
     Route: 048
     Dates: end: 20090204
  9. CALFINA [Concomitant]
     Indication: PROPHYLAXIS
     Route: 048
     Dates: end: 20090202
  10. CLARITHROMYCIN [Suspect]
     Dates: start: 20090316, end: 20090323
  11. RIFADIN [Concomitant]
     Indication: ATYPICAL MYCOBACTERIAL INFECTION
     Dates: start: 20090121, end: 20090204
  12. RIFADIN [Concomitant]
     Dates: start: 20090331, end: 20091201
  13. SELBEX [Concomitant]
     Indication: PROPHYLAXIS
     Route: 048
     Dates: end: 20090202
  14. NEOMALLERMIN TR [Concomitant]
     Indication: PROPHYLAXIS
     Route: 048
  15. CLARITHROMYCIN [Suspect]
     Dates: start: 20090313, end: 20090315
  16. EBUTOL [Concomitant]
     Dates: start: 20090220, end: 20091201
  17. FAMOSTAGINE [Concomitant]
     Indication: PROPHYLAXIS
     Route: 048
     Dates: end: 20090202

REACTIONS (2)
  - RASH [None]
  - ERYTHEMA [None]
